FAERS Safety Report 6036439-0 (Version None)
Quarter: 2009Q1

REPORT INFORMATION
  Report Type: 
  Country: None (occurrence: None)
  Receive Date: 20090112
  Receipt Date: 20081229
  Transmission Date: 20090719
  Serious: Yes (Hospitalization)
  Sender: FDA-Public Use
  Company Number: KV200801470

PATIENT
  Age: 57 Year
  Sex: Female
  Weight: 83.9 kg

DRUGS (16)
  1. MORPHINE SULFATE [Suspect]
     Indication: PROCEDURAL PAIN
     Dosage: 15 MG, ONE TAB EVERY 4 HOURSMAX-4 TABS QD, ORAL
     Route: 048
     Dates: start: 20080401, end: 20080501
  2. INSULIN [Concomitant]
  3. RAPAMUNE [Concomitant]
  4. PREDNISONE [Concomitant]
  5. PRILOSEC [Concomitant]
  6. METOPROLOL [Concomitant]
  7. DILTIAZEM [Concomitant]
  8. PLAVIX [Concomitant]
  9. FUROSEMIDE [Concomitant]
  10. TAMOXIFEN CITRATE [Concomitant]
  11. BACTRIM [Concomitant]
  12. FOSAMAX [Concomitant]
  13. NEURONTIN [Concomitant]
  14. CELEXA [Concomitant]
  15. CALCITRIOL [Concomitant]
  16. WARFARIN SODIUM [Concomitant]

REACTIONS (4)
  - LOSS OF CONSCIOUSNESS [None]
  - OVERDOSE [None]
  - PNEUMONIA [None]
  - PRODUCT QUALITY ISSUE [None]
